FAERS Safety Report 16781792 (Version 2)
Quarter: 2019Q3

REPORT INFORMATION
  Report Type: Spontaneous
  Country: US (occurrence: US)
  Receive Date: 20190906
  Receipt Date: 20190910
  Transmission Date: 20191005
  Serious: No
  Sender: FDA-Public Use
  Company Number: US-BIOGEN-2019BI00764646

PATIENT
  Age: 51 Year
  Sex: Female

DRUGS (4)
  1. VYVANSE [Concomitant]
     Active Substance: LISDEXAMFETAMINE DIMESYLATE
     Route: 065
  2. TECFIDERA [Suspect]
     Active Substance: DIMETHYL FUMARATE
     Indication: MULTIPLE SCLEROSIS
     Route: 065
     Dates: start: 20190612, end: 20190726
  3. TECFIDERA [Suspect]
     Active Substance: DIMETHYL FUMARATE
     Route: 048
     Dates: start: 20190726
  4. TECFIDERA [Suspect]
     Active Substance: DIMETHYL FUMARATE
     Route: 065
     Dates: start: 20190712

REACTIONS (10)
  - Hypoaesthesia [Unknown]
  - Primary progressive multiple sclerosis [Unknown]
  - Bradykinesia [Unknown]
  - Intentional product misuse [Not Recovered/Not Resolved]
  - Rash [Unknown]
  - Fatigue [Unknown]
  - Depression [Unknown]
  - Paraesthesia [Unknown]
  - Hot flush [Unknown]
  - Product dose omission [Unknown]

NARRATIVE: CASE EVENT DATE: 20190712
